FAERS Safety Report 15231161 (Version 1)
Quarter: 2018Q3

REPORT INFORMATION
  Report Type: Spontaneous
  Country: US (occurrence: US)
  Receive Date: 20180802
  Receipt Date: 20180802
  Transmission Date: 20181010
  Serious: Yes (Hospitalization, Other)
  Sender: FDA-Public Use
  Company Number: US-JNJFOC-20180739033

PATIENT
  Age: 78 Year
  Sex: Female

DRUGS (1)
  1. INVOKANA [Suspect]
     Active Substance: CANAGLIFLOZIN
     Indication: TYPE 2 DIABETES MELLITUS
     Route: 048
     Dates: start: 201411

REACTIONS (4)
  - Skin ulcer [Recovered/Resolved]
  - Blood blister [Unknown]
  - Toe amputation [Unknown]
  - Gangrene [Unknown]

NARRATIVE: CASE EVENT DATE: 201512
